FAERS Safety Report 5208715-2 (Version None)
Quarter: 2007Q1

REPORT INFORMATION
  Report Type: 
  Country: None (occurrence: None)
  Receive Date: 20070116
  Receipt Date: 20070105
  Transmission Date: 20070707
  Serious: Yes (Other)
  Sender: FDA-Public Use
  Company Number: PHEH2007US00579

PATIENT
  Sex: Male

DRUGS (1)
  1. TEGRETOL [Suspect]
     Dates: start: 19970101, end: 20040101

REACTIONS (5)
  - CONSTIPATION [None]
  - DEPRESSED MOOD [None]
  - GASTROINTESTINAL PAIN [None]
  - PAIN [None]
  - RECTAL HAEMORRHAGE [None]
